FAERS Safety Report 15612800 (Version 2)
Quarter: 2019Q1

REPORT INFORMATION
  Report Type: Spontaneous
  Country: US (occurrence: US)
  Receive Date: 20181113
  Receipt Date: 20190109
  Transmission Date: 20190417
  Serious: Yes (Other)
  Sender: FDA-Public Use
  Company Number: US-GLAXOSMITHKLINE-US2018204531

PATIENT
  Age: 86 Year
  Sex: Male

DRUGS (1)
  1. GAS-X EXTRA STRENGTH [Suspect]
     Active Substance: DIMETHICONE
     Indication: FLATULENCE
     Dosage: TWO TABLETS
     Dates: start: 20181030, end: 20181108

REACTIONS (4)
  - Back pain [Recovered/Resolved]
  - Pulmonary thrombosis [Unknown]
  - Renal pain [Recovered/Resolved]
  - Pulmonary pain [Recovered/Resolved]

NARRATIVE: CASE EVENT DATE: 20181031
